FAERS Safety Report 6793348-7 (Version None)
Quarter: 2010Q2

REPORT INFORMATION
  Report Type: 
  Country: None (occurrence: None)
  Receive Date: 20100624
  Receipt Date: 20100202
  Transmission Date: 20101027
  Serious: Yes (Other)
  Sender: FDA-Public Use
  Company Number: US-MYLANLABS-2009S1021527

PATIENT
  Age: 25 Year
  Sex: Male
  Weight: 73.03 kg

DRUGS (12)
  1. CLOZAPINE [Suspect]
     Indication: BIPOLAR I DISORDER
     Dates: start: 20081217, end: 20091124
  2. CLOZAPINE [Suspect]
     Dates: start: 20081217, end: 20091124
  3. COGENTIN [Concomitant]
     Dates: start: 20090930
  4. BUPROPION HCL [Concomitant]
  5. IMIPRAMINE [Concomitant]
     Dates: start: 20090730
  6. LITHIUM CARBONATE [Concomitant]
     Indication: BIPOLAR DISORDER
     Dates: start: 20081224
  7. KEPPRA [Concomitant]
     Dates: start: 20091027
  8. DESMOPRESSIN ACETATE [Concomitant]
     Dates: start: 20081228
  9. OXYBUTYNIN CHLORIDE [Concomitant]
     Dates: start: 20081228
  10. LACTULOSE [Concomitant]
  11. DOCUSATE [Concomitant]
  12. MIRALAX [Concomitant]

REACTIONS (3)
  - AGRANULOCYTOSIS [None]
  - GRANULOCYTOPENIA [None]
  - LEUKOPENIA [None]
